FAERS Safety Report 9447687 (Version 3)
Quarter: 2014Q2

REPORT INFORMATION
  Report Type: Spontaneous
  Country: US (occurrence: US)
  Receive Date: 20130808
  Receipt Date: 20140429
  Transmission Date: 20141212
  Serious: Yes (Hospitalization)
  Sender: FDA-Public Use
  Company Number: US-BAYER-2013-094504

PATIENT
  Age: 48 Year
  Sex: Female
  Weight: 113.38 kg

DRUGS (21)
  1. YASMIN [Suspect]
     Indication: CONTRACEPTION
     Dosage: UNK
     Dates: start: 200701, end: 200809
  2. YASMIN [Suspect]
     Indication: ACNE
     Dosage: UNK
     Dates: start: 2002, end: 2009
  3. YASMIN [Suspect]
     Indication: HIRSUTISM
  4. YASMIN [Suspect]
     Indication: POLYCYSTIC OVARIES
  5. OCELLA [Suspect]
     Indication: CONTRACEPTION
     Dosage: UNK
     Dates: start: 200810, end: 200909
  6. OCELLA [Suspect]
     Indication: ACNE
     Dosage: UNK
     Dates: start: 2002, end: 2009
  7. OCELLA [Suspect]
     Indication: HIRSUTISM
  8. OCELLA [Suspect]
     Indication: POLYCYSTIC OVARIES
  9. OCELLA [Suspect]
     Indication: MENSTRUATION IRREGULAR
  10. FLONASE [Concomitant]
     Dosage: UNK
  11. ZYRTEC [Concomitant]
     Dosage: UNK
  12. ADVIL [Concomitant]
     Dosage: UNK
  13. LAMISIL [Concomitant]
     Dosage: UNK
  14. MULTIVITAMIN [Concomitant]
     Dosage: UNK
  15. FISH OIL [Concomitant]
     Dosage: UNK
  16. SPIRONOLACTONE [Concomitant]
     Indication: ACNE
     Dosage: UNK
     Dates: start: 2000
  17. ASCORBIC ACID [Concomitant]
     Dosage: UNK
     Dates: start: 2000
  18. LIPITOR [Concomitant]
     Dosage: UNK
     Dates: start: 2005
  19. ELOCON [Concomitant]
     Indication: HYPERSENSITIVITY
     Dosage: UNK
     Dates: start: 2006
  20. ELOCON [Concomitant]
     Indication: ECZEMA
  21. DOXYCYCLINE [Concomitant]
     Indication: ACNE
     Dosage: UNK
     Dates: start: 2006

REACTIONS (4)
  - Deep vein thrombosis [None]
  - Pulmonary embolism [None]
  - Dyspnoea [None]
  - Malaise [None]
